FAERS Safety Report 21475759 (Version 1)
Quarter: 2022Q4

REPORT INFORMATION
  Report Type: Report from Study
  Country: ES (occurrence: ES)
  Receive Date: 20221019
  Receipt Date: 20221019
  Transmission Date: 20230113
  Serious: Yes (Life-Threatening, Hospitalization)
  Sender: FDA-Public Use
  Company Number: None

PATIENT
  Age: 43 Year
  Sex: Female

DRUGS (4)
  1. CARBOPLATIN [Interacting]
     Active Substance: CARBOPLATIN
     Indication: Product used for unknown indication
     Dosage: 10 MG/ML CONCENTRATE FOR SOLUTION FOR INFUSION EFG, 1 VIAL OF 15 ML, 1 CYCLE EVERY 3 WEEKS
     Dates: start: 20211110
  2. CYCLOPHOSPHAMIDE [Interacting]
     Active Substance: CYCLOPHOSPHAMIDE
     Indication: Product used for unknown indication
     Dosage: 1,000 MG POWDER FOR SOLUTION FOR INJECTION AND INFUSION EFG, 1 VIAL, 1 CYCLE EVERY 3 WEEKS
     Dates: start: 20210730
  3. DOCETAXEL [Interacting]
     Active Substance: DOCETAXEL
     Indication: Product used for unknown indication
     Dosage: 80 MG/4 ML CONCENTRATE FOR SOLUTION FOR INFUSION EFG, 1 VIAL OF 4 ML, CYCLE EVERY 3 WEEKS
     Dates: start: 20211110
  4. DOXORUBICIN [Interacting]
     Active Substance: DOXORUBICIN
     Indication: Product used for unknown indication
     Dosage: 2 MG/ML CONCENTRATE FOR SOLUTION FOR INFUSION EFG, 1 VIAL OF 50 ML, 1 CYCLE EVERY 3 WEEKS
     Dates: start: 20210730

REACTIONS (4)
  - Febrile neutropenia [Recovered/Resolved]
  - Neutropenia [Recovered/Resolved]
  - Pancytopenia [Recovered/Resolved]
  - Drug interaction [Unknown]

NARRATIVE: CASE EVENT DATE: 20211201
